FAERS Safety Report 5747676-4 (Version None)
Quarter: 2008Q2

REPORT INFORMATION
  Report Type: 
  Country: None (occurrence: None)
  Receive Date: 20080523
  Receipt Date: 20080516
  Transmission Date: 20081010
  Serious: Yes (Hospitalization)
  Sender: FDA-Public Use
  Company Number: JP-ASTRAZENECA-2008AP01007

PATIENT
  Age: 17421 Day
  Sex: Female
  Weight: 55 kg

DRUGS (3)
  1. CRESTOR [Suspect]
     Indication: HYPERLIPIDAEMIA
     Route: 048
     Dates: start: 20070915, end: 20080207
  2. LEVOFLOXACIN [Suspect]
     Indication: ENTERITIS INFECTIOUS
     Route: 048
     Dates: start: 20080129, end: 20080129
  3. CHOLEBRINE [Suspect]
     Indication: HYPERLIPIDAEMIA
     Route: 048
     Dates: start: 20071027, end: 20080205

REACTIONS (2)
  - ENTERITIS INFECTIOUS [None]
  - HEPATIC FUNCTION ABNORMAL [None]
